FAERS Safety Report 5672025-X (Version None)
Quarter: 2008Q1

REPORT INFORMATION
  Report Type: 
  Country: None (occurrence: None)
  Receive Date: 20080314
  Receipt Date: 20080227
  Transmission Date: 20080703
  Serious: Yes (Life-Threatening, Disabling)
  Sender: FDA-Public Use
  Company Number: 8030359

PATIENT
  Age: 70 Year
  Sex: Female

DRUGS (4)
  1. KEPPRA [Suspect]
     Indication: SLEEP DISORDER
     Dosage: 250 MG 2/D PO
     Route: 048
  2. KEPPRA [Suspect]
     Indication: SLEEP DISORDER
     Dosage: 125 MG 1/D PO
     Route: 048
  3. CISORDINOL /00876703/ [Suspect]
     Indication: SLEEP DISORDER
     Dosage: 2 MG 2/D PO
     Route: 048
  4. NORMISON [Suspect]
     Indication: SLEEP DISORDER
     Dosage: 20 MG 1/D PO
     Route: 048

REACTIONS (8)
  - APHASIA [None]
  - DYSGEUSIA [None]
  - DYSPHONIA [None]
  - FEAR [None]
  - MEMORY IMPAIRMENT [None]
  - PHOTOPHOBIA [None]
  - SENSORY DISTURBANCE [None]
  - TARDIVE DYSKINESIA [None]
